FAERS Safety Report 5415192-5 (Version None)
Quarter: 2007Q3

REPORT INFORMATION
  Report Type: 
  Country: None (occurrence: None)
  Receive Date: 20070815
  Receipt Date: 20070718
  Transmission Date: 20080115
  Serious: No
  Sender: FDA-Public Use
  Company Number: A0664860A

PATIENT
  Age: 58 Year
  Sex: Male

DRUGS (12)
  1. COREG CR [Suspect]
     Dosage: 80MG PER DAY
     Route: 048
     Dates: start: 20070601
  2. BUMETANIDE [Concomitant]
  3. IMDUR [Concomitant]
  4. LANOXIN [Concomitant]
  5. GLIPIZIDE [Concomitant]
  6. PLAVIX [Concomitant]
  7. ASPIRIN [Concomitant]
  8. LIPITOR [Concomitant]
  9. ZETIA [Concomitant]
  10. SYNTHROID [Concomitant]
  11. RANITIDINE [Concomitant]
  12. NITROCOD [Concomitant]

REACTIONS (2)
  - BLOOD GLUCOSE INCREASED [None]
  - DRY MOUTH [None]
